FAERS Safety Report 14604321 (Version 6)
Quarter: 2018Q2

REPORT INFORMATION
  Report Type: Spontaneous
  Country: CA (occurrence: CA)
  Receive Date: 20180306
  Receipt Date: 20180531
  Transmission Date: 20180711
  Serious: Yes (Other)
  Sender: FDA-Public Use
  Company Number: CA-CELLTRION INC.-2017CA017249

PATIENT

DRUGS (6)
  1. INFLECTRA [Suspect]
     Active Substance: INFLIXIMAB-DYYB
     Indication: COLITIS ULCERATIVE
     Dosage: 315 MG, CYCLIC (WEEKS 0, 2, 6, THEN EVERY 8 WEEKS)
     Route: 042
     Dates: start: 20171121
  2. INFLECTRA [Suspect]
     Active Substance: INFLIXIMAB-DYYB
     Dosage: 315 MG, CYCLIC (WEEKS 0, 2, 6, THEN EVERY 8 WEEKS)
     Route: 042
     Dates: start: 20180104
  3. INFLECTRA [Suspect]
     Active Substance: INFLIXIMAB-DYYB
     Dosage: 315 MG/ THEN EVERY 6 WEEKS
     Route: 042
     Dates: start: 20180411
  4. METHYLPREDNISOLONE. [Concomitant]
     Active Substance: METHYLPREDNISOLONE
     Dosage: 30 MG, BID
     Route: 042
     Dates: start: 20171119
  5. INFLECTRA [Suspect]
     Active Substance: INFLIXIMAB-DYYB
     Dosage: UNK
     Route: 065
  6. HYDROMORPHONE [Concomitant]
     Active Substance: HYDROMORPHONE
     Dosage: 1 MG, PRN (AS NEEDED)
     Route: 058
     Dates: start: 20171119

REACTIONS (10)
  - Product use issue [Unknown]
  - Migraine [Unknown]
  - Pyrexia [Recovering/Resolving]
  - Condition aggravated [Recovering/Resolving]
  - Colitis ulcerative [Recovering/Resolving]
  - Nausea [Recovering/Resolving]
  - Haematochezia [Not Recovered/Not Resolved]
  - Feeling abnormal [Unknown]
  - Drug effect incomplete [Not Recovered/Not Resolved]
  - Fatigue [Unknown]

NARRATIVE: CASE EVENT DATE: 20171127
